FAERS Safety Report 14666761 (Version 1)
Quarter: 2018Q1

REPORT INFORMATION
  Report Type: Spontaneous
  Country: DK (occurrence: DK)
  Receive Date: 20180322
  Receipt Date: 20180322
  Transmission Date: 20180509
  Serious: Yes (Disabling)
  Sender: FDA-Public Use
  Company Number: DK-CIPLA LTD.-2018DK11762

PATIENT

DRUGS (1)
  1. ZOLEDRONIC ACID [Suspect]
     Active Substance: ZOLEDRONIC ACID
     Indication: BREAST CANCER FEMALE
     Dosage: UNK
     Dates: start: 20160729, end: 20160817

REACTIONS (13)
  - Peripheral swelling [Unknown]
  - Arthralgia [Not Recovered/Not Resolved]
  - Nausea [Unknown]
  - Myalgia [Recovering/Resolving]
  - Pain [Unknown]
  - Infusion site pain [Unknown]
  - Fatigue [Recovering/Resolving]
  - Dizziness [Unknown]
  - Joint stiffness [Recovering/Resolving]
  - Musculoskeletal stiffness [Recovering/Resolving]
  - Joint swelling [Unknown]
  - Pyrexia [Unknown]
  - Malaise [Unknown]
